FAERS Safety Report 9779834 (Version 1)
Quarter: 2013Q4

REPORT INFORMATION
  Report Type: Spontaneous
  Country: US (occurrence: US)
  Receive Date: 20131223
  Receipt Date: 20131223
  Transmission Date: 20140711
  Serious: No
  Sender: FDA-Public Use
  Company Number: US-ENDO PHARMACEUTICALS INC.-ZOLP20130005

PATIENT
  Age: 70 Year
  Sex: Male
  Weight: 128.03 kg

DRUGS (1)
  1. ZOLPIDEM TARTRATE TABLETS 10MG [Suspect]
     Indication: INSOMNIA
     Route: 048
     Dates: start: 2012

REACTIONS (2)
  - Sleep talking [Not Recovered/Not Resolved]
  - Drug effect decreased [Not Recovered/Not Resolved]
